FAERS Safety Report 16463868 (Version 1)
Quarter: 2019Q2

REPORT INFORMATION
  Report Type: Spontaneous
  Country: JP (occurrence: JP)
  Receive Date: 20190621
  Receipt Date: 20190621
  Transmission Date: 20190711
  Serious: Yes (Death, Hospitalization, Other)
  Sender: FDA-Public Use
  Company Number: JP-SAKK-2019SA163371AA

PATIENT
  Age: 78 Year
  Sex: Male

DRUGS (4)
  1. ZALTRAP [Suspect]
     Active Substance: ZIV-AFLIBERCEPT
     Indication: COLON CANCER
     Dosage: UNK
     Route: 041
     Dates: start: 20180626, end: 20180704
  2. IRINOTECAN [Suspect]
     Active Substance: IRINOTECAN
     Indication: COLON CANCER
     Dosage: 200 MG/M2 (100 MG/M2, 1 HR, DAY1 AND DAY3), QOW
     Route: 042
     Dates: start: 20180626, end: 20180704
  3. CALCIUM FOLINATE [Suspect]
     Active Substance: LEUCOVORIN CALCIUM
     Indication: COLON CANCER
     Dosage: 200 MG/M2(2HR),QOW
     Route: 042
     Dates: start: 20180626, end: 20180704
  4. FLUOROURACIL. [Suspect]
     Active Substance: FLUOROURACIL
     Indication: COLON CANCER
     Dosage: 2400 MG/M2 (46 HR), QOW
     Route: 042
     Dates: start: 20180626, end: 20180704

REACTIONS (2)
  - Hyperthermia [Unknown]
  - Febrile neutropenia [Fatal]

NARRATIVE: CASE EVENT DATE: 20180703
